FAERS Safety Report 4702618-5 (Version None)
Quarter: 2005Q2

REPORT INFORMATION
  Report Type: 
  Country: None (occurrence: None)
  Receive Date: 20050629
  Receipt Date: 20050621
  Transmission Date: 20051028
  Serious: Yes (Other)
  Sender: FDA-Public Use
  Company Number: US-GLAXOSMITHKLINE-A0563541A

PATIENT
  Age: 78 Year
  Sex: Female
  Weight: 72 kg

DRUGS (6)
  1. TUMS ULTRA TABLETS, ASSORTED FRUIT [Suspect]
     Indication: DYSPEPSIA
     Route: 048
  2. NABUMETONE [Concomitant]
     Indication: ARTHRITIS
     Dosage: 750MG TWICE PER DAY
     Route: 048
  3. LISINOPRIL [Concomitant]
     Indication: BLOOD PRESSURE
     Dosage: 30MG PER DAY
     Route: 048
  4. CLARINEX [Concomitant]
     Indication: MULTIPLE ALLERGIES
     Dosage: 5MG PER DAY
     Route: 048
  5. HYDROCHLOROTHIAZIDE [Concomitant]
     Indication: DIURETIC THERAPY
     Dosage: 12.5MG PER DAY
     Route: 048
  6. MOVE FREE DS [Concomitant]
     Indication: ARTHROPATHY

REACTIONS (1)
  - MELAENA [None]
